FAERS Safety Report 7860776-8 (Version None)
Quarter: 2011Q4

REPORT INFORMATION
  Report Type: 
  Country: None (occurrence: None)
  Receive Date: 20111027
  Receipt Date: 20111018
  Transmission Date: 20120403
  Serious: Yes (Other)
  Sender: FDA-Public Use
  Company Number: US-ASTRAZENECA-2011SE62899

PATIENT
  Age: 63 Year
  Sex: Female
  Weight: 99.8 kg

DRUGS (4)
  1. AMBIAM [Concomitant]
     Indication: SLEEP DISORDER
  2. SELEXA [Concomitant]
     Indication: BIPOLAR DISORDER
  3. SEROQUEL XR [Suspect]
     Indication: BIPOLAR DISORDER
     Route: 048
  4. ATAVAND [Concomitant]
     Indication: BIPOLAR DISORDER
     Dosage: 1 MG, Q3D

REACTIONS (1)
  - CANCER IN REMISSION [None]
